FAERS Safety Report 21885859 (Version 1)
Quarter: 2023Q1

REPORT INFORMATION
  Report Type: Spontaneous
  Country: US (occurrence: US)
  Receive Date: 20230119
  Receipt Date: 20230119
  Transmission Date: 20230418
  Serious: No
  Sender: FDA-Public Use
  Company Number: US-GALDERMA-US2022005952

PATIENT

DRUGS (1)
  1. ADAPALENE\BENZOYL PEROXIDE [Suspect]
     Active Substance: ADAPALENE\BENZOYL PEROXIDE
     Indication: Product used for unknown indication
     Dosage: 1 DOSAGE FORM, 0.3%/2.5% GEL
     Route: 061

REACTIONS (4)
  - Erythema [Unknown]
  - Skin burning sensation [Unknown]
  - Skin irritation [Unknown]
  - Eye irritation [Unknown]
